FAERS Safety Report 6107542-1 (Version None)
Quarter: 2009Q1

REPORT INFORMATION
  Report Type: 
  Country: None (occurrence: None)
  Receive Date: 20090309
  Receipt Date: 20090225
  Transmission Date: 20090719
  Serious: Yes (Hospitalization)
  Sender: FDA-Public Use
  Company Number: PHBS2009GR01031

PATIENT
  Age: 67 Year
  Sex: Male

DRUGS (3)
  1. METOPROLOL [Suspect]
     Dosage: 25 MG, TID
  2. ASPIRIN [Concomitant]
     Dosage: 325 MG
  3. SIMVASTATIN [Concomitant]
     Dosage: 40 MG

REACTIONS (17)
  - ANGINA PECTORIS [None]
  - ARTHROPOD STING [None]
  - BLOOD IMMUNOGLOBULIN E INCREASED [None]
  - CHEST DISCOMFORT [None]
  - DERMATITIS ALLERGIC [None]
  - DIZZINESS [None]
  - HEADACHE [None]
  - HEART RATE INCREASED [None]
  - HYPERSENSITIVITY [None]
  - HYPOTENSION [None]
  - MYOCARDIAL ISCHAEMIA [None]
  - PARAESTHESIA [None]
  - PERIORBITAL OEDEMA [None]
  - PRURITUS [None]
  - RASH ERYTHEMATOUS [None]
  - RESPIRATORY DISORDER [None]
  - TRYPTASE INCREASED [None]
